FAERS Safety Report 22098432 (Version 2)
Quarter: 2023Q1

REPORT INFORMATION
  Report Type: Other
  Country: US (occurrence: US)
  Receive Date: 20230315
  Receipt Date: 20230330
  Transmission Date: 20230418
  Serious: No
  Sender: FDA-Public Use
  Company Number: US-DECIPHERA PHARMACEUTICALS LLC-2023US000162

PATIENT
  Sex: Male

DRUGS (1)
  1. QINLOCK [Suspect]
     Active Substance: RIPRETINIB
     Indication: Gastrointestinal stromal tumour
     Dosage: 150 MILLIGRAM, QD
     Route: 048
     Dates: start: 20230203

REACTIONS (11)
  - Blood creatinine abnormal [Unknown]
  - Neuropathy peripheral [Recovering/Resolving]
  - Blood pressure decreased [Unknown]
  - Hypoaesthesia [Unknown]
  - Perineal rash [Unknown]
  - Hyperaesthesia [Unknown]
  - Diarrhoea [Unknown]
  - Fatigue [Unknown]
  - Constipation [Unknown]
  - Abdominal pain [Recovered/Resolved]
  - Arthralgia [Unknown]
